FAERS Safety Report 12145529 (Version 3)
Quarter: 2016Q2

REPORT INFORMATION
  Report Type: Spontaneous
  Country: KR (occurrence: KR)
  Receive Date: 20160304
  Receipt Date: 20160405
  Transmission Date: 20160815
  Serious: Yes (Hospitalization)
  Sender: FDA-Public Use
  Company Number: KR-AMGEN-KORCT2016027068

PATIENT
  Age: 57 Year
  Sex: Female
  Weight: 72 kg

DRUGS (16)
  1. TYLENOL [Concomitant]
     Active Substance: ACETAMINOPHEN
     Dosage: 1950 MG, UNK
     Route: 048
     Dates: start: 20141027
  2. BISOLVON [Concomitant]
     Active Substance: BROMHEXINE HYDROCHLORIDE
     Dosage: 24 MG, UNK
     Route: 048
     Dates: start: 20141027
  3. DOXORUBICIN [Concomitant]
     Active Substance: DOXORUBICIN
     Dosage: 90 MG, UNK
     Route: 042
     Dates: start: 20141027, end: 20141027
  4. CYCLOPHOSPHAMIDE. [Concomitant]
     Active Substance: CYCLOPHOSPHAMIDE
     Dosage: 905 MG, UNK
     Route: 042
     Dates: start: 20141027, end: 20141027
  5. STILLEN                            /07152401/ [Concomitant]
     Dosage: 180 MG, UNK
     Route: 048
     Dates: start: 20141027
  6. SODIUM ALGINATE [Concomitant]
     Active Substance: SODIUM ALGINATE
     Dosage: 60 ML, UNK
     Route: 048
     Dates: start: 20141101, end: 20141104
  7. RABIET [Concomitant]
     Dosage: 10 MG, UNK
     Route: 048
     Dates: start: 20141027
  8. BENZYDAMINE HYDROCHLORIDE [Concomitant]
     Active Substance: BENZYDAMINE HYDROCHLORIDE
     Dosage: 200 ML, UNK
     Route: 065
     Dates: start: 20141103, end: 20141103
  9. DOCETAXEL. [Concomitant]
     Active Substance: DOCETAXEL
     Dosage: 135 MG, UNK
     Route: 042
     Dates: start: 20141027, end: 20141027
  10. MACPERAN [Concomitant]
     Dosage: 15 MG, UNK
     Route: 048
     Dates: start: 20141027
  11. GASMOTIN [Concomitant]
     Active Substance: MOSAPRIDE CITRATE
     Dosage: 15 MG, UNK
     Route: 048
     Dates: start: 20141027
  12. G-LASTA [Suspect]
     Active Substance: PEGFILGRASTIM
     Indication: FEBRILE NEUTROPENIA
     Dosage: 6 MG, 1X/3WEEKS
     Route: 058
     Dates: start: 20141028
  13. COFREL                             /00285102/ [Concomitant]
     Dosage: 60 MG, UNK
     Route: 048
     Dates: start: 20141027
  14. EMEND [Concomitant]
     Active Substance: APREPITANT
     Dosage: 125 MG, UNK
     Route: 048
     Dates: start: 20141027
  15. STILNOX [Concomitant]
     Active Substance: ZOLPIDEM TARTRATE
     Dosage: 12.5 MG, UNK
     Route: 048
     Dates: start: 20141027
  16. MUTERAN [Concomitant]
     Active Substance: ACETYLCYSTEINE
     Dosage: 600 MG, UNK
     Route: 048
     Dates: start: 20141027

REACTIONS (2)
  - Neutropenia [Recovered/Resolved]
  - Upper respiratory tract infection [Recovered/Resolved]

NARRATIVE: CASE EVENT DATE: 20141103
